FAERS Safety Report 10447123 (Version 1)
Quarter: 2014Q3

REPORT INFORMATION
  Report Type: Spontaneous
  Country: US (occurrence: None)
  Receive Date: 20140910
  Receipt Date: 20140910
  Transmission Date: 20150326
  Serious: Yes (Hospitalization)
  Sender: FDA-Public Use
  Company Number: None

PATIENT
  Age: 88 Year
  Sex: Male

DRUGS (7)
  1. ZYTIGA [Suspect]
     Active Substance: ABIRATERONE ACETATE
     Indication: PROSTATE CANCER
     Route: 048
     Dates: start: 20140423
  2. DIPYRIDAMOLE. [Concomitant]
     Active Substance: DIPYRIDAMOLE
  3. ZYTIGA [Suspect]
     Active Substance: ABIRATERONE ACETATE
     Indication: METASTASES TO BONE MARROW
     Route: 048
     Dates: start: 20140423
  4. OMEPRAZOLE. [Concomitant]
     Active Substance: OMEPRAZOLE
  5. FLOMAX [Concomitant]
     Active Substance: TAMSULOSIN HYDROCHLORIDE
  6. ZYTIGA [Suspect]
     Active Substance: ABIRATERONE ACETATE
     Indication: BONE CANCER METASTATIC
     Route: 048
     Dates: start: 20140423
  7. PROPANELOL [Concomitant]

REACTIONS (3)
  - Dehydration [None]
  - Incoherent [None]
  - General physical health deterioration [None]

NARRATIVE: CASE EVENT DATE: 20140903
